FAERS Safety Report 5884914-1 (Version None)
Quarter: 2008Q3

REPORT INFORMATION
  Report Type: 
  Country: None (occurrence: None)
  Receive Date: 20080916
  Receipt Date: 20080911
  Transmission Date: 20090109
  Serious: Yes (Life-Threatening, Other)
  Sender: FDA-Public Use
  Company Number: A0746439A

PATIENT
  Age: 59 Year
  Sex: Male
  Weight: 52 kg

DRUGS (4)
  1. LAPATINIB [Suspect]
     Dosage: 1500MG PER DAY
     Route: 048
     Dates: start: 20080821
  2. CISPLATIN [Suspect]
     Dosage: 100MGM2 PER DAY
     Route: 042
     Dates: start: 20080828
  3. RADIOTHERAPY [Suspect]
     Dosage: 4GY PER DAY
     Route: 061
     Dates: start: 20080828
  4. DEPAKOTE [Concomitant]
     Dosage: 500MG TWICE PER DAY
     Route: 048
     Dates: start: 20080629

REACTIONS (1)
  - BLOOD CREATININE INCREASED [None]
